FAERS Safety Report 8556121-5 (Version None)
Quarter: 2012Q3

REPORT INFORMATION
  Report Type: 
  Country: None (occurrence: None)
  Receive Date: 20120719
  Receipt Date: 20120713
  Transmission Date: 20120928
  Serious: Yes (Other)
  Sender: FDA-Public Use
  Company Number: GER/GER/12/0025074

PATIENT
  Age: 26 Year
  Sex: Female
  Weight: 100 kg

DRUGS (4)
  1. OMEPRAZOLE [Concomitant]
  2. FEMIBION [Concomitant]
  3. LEVOTHYROXINE SODIUM [Concomitant]
  4. VENLAFAXINE HCL [Suspect]
     Indication: ANXIETY DISORDER
     Dosage: 75 MG, 1 IN 1 D, ORAL
     Route: 048
     Dates: start: 20111125, end: 20120419

REACTIONS (3)
  - ABORTION INDUCED [None]
  - MATERNAL EXPOSURE DURING PREGNANCY [None]
  - OLIGOHYDRAMNIOS [None]
